FAERS Safety Report 18551343 (Version 5)
Quarter: 2023Q4

REPORT INFORMATION
  Report Type: Spontaneous
  Country: US (occurrence: US)
  Receive Date: 20201126
  Receipt Date: 20231023
  Transmission Date: 20240109
  Serious: No
  Sender: FDA-Public Use
  Company Number: US-PFIZER INC-2020468331

PATIENT
  Age: 60 Year
  Sex: Female

DRUGS (5)
  1. DOCETAXEL [Suspect]
     Active Substance: DOCETAXEL
     Indication: Breast cancer female
     Dosage: UNK, SINGLE (CYCLE 1)
     Dates: start: 20200120, end: 20200120
  2. DOCETAXEL [Suspect]
     Active Substance: DOCETAXEL
     Dosage: 141 MG, SINGLE (CYCLE 2)
     Dates: start: 20200210, end: 20200210
  3. DOCETAXEL [Suspect]
     Active Substance: DOCETAXEL
     Dosage: 141 MG, SINGLE (CYCLE 3)
     Dates: start: 20200302, end: 20200302
  4. DOCETAXEL [Suspect]
     Active Substance: DOCETAXEL
     Dosage: UNK, SINGLE (CYCLE 4)
     Dates: start: 20200323, end: 20200323
  5. CYTOXAN [Concomitant]
     Active Substance: CYCLOPHOSPHAMIDE
     Indication: Chemotherapy
     Dosage: UNK

REACTIONS (4)
  - Dacryostenosis acquired [Not Recovered/Not Resolved]
  - Lacrimation increased [Not Recovered/Not Resolved]
  - Lacrimal structure injury [Not Recovered/Not Resolved]
  - Dry eye [Not Recovered/Not Resolved]

NARRATIVE: CASE EVENT DATE: 20200201
